FAERS Safety Report 14318164 (Version 1)
Quarter: 2017Q4

REPORT INFORMATION
  Report Type: Spontaneous
  Country: IT (occurrence: IT)
  Receive Date: 20171222
  Receipt Date: 20171222
  Transmission Date: 20180321
  Serious: Yes (Hospitalization)
  Sender: FDA-Public Use
  Company Number: IT-PFIZER INC-2015301239

PATIENT
  Age: 30 Year
  Sex: Male

DRUGS (6)
  1. SERTRALINE HCL [Suspect]
     Active Substance: SERTRALINE HYDROCHLORIDE
     Dosage: 900 MG, SINGLE
     Route: 048
     Dates: start: 20150830
  2. SERTRALINE HCL [Suspect]
     Active Substance: SERTRALINE HYDROCHLORIDE
     Indication: DEPRESSION
     Dosage: 75 MG, UNK
     Route: 048
     Dates: start: 20150101
  3. ABILIFY [Suspect]
     Active Substance: ARIPIPRAZOLE
     Dosage: 50 MG, SINGLE
     Route: 048
     Dates: start: 20150830
  4. DEPAKIN [Suspect]
     Active Substance: VALPROATE SODIUM
     Dosage: 7.5 G, SINGLE
     Route: 048
     Dates: start: 20150830
  5. DEPAKIN [Suspect]
     Active Substance: VALPROATE SODIUM
     Indication: OBSESSIVE-COMPULSIVE DISORDER
     Dosage: 500 MG, UNK
     Route: 048
     Dates: start: 20140101
  6. ABILIFY [Suspect]
     Active Substance: ARIPIPRAZOLE
     Indication: SCHIZOTYPAL PERSONALITY DISORDER
     Dosage: 5 MG, UNK
     Route: 048
     Dates: start: 20150101

REACTIONS (7)
  - Psychomotor retardation [Recovered/Resolved]
  - Off label use [Unknown]
  - Vomiting [Recovered/Resolved]
  - Overdose [Recovered/Resolved]
  - Ammonia increased [Unknown]
  - Blood creatine phosphokinase increased [Unknown]
  - Nausea [Recovered/Resolved]

NARRATIVE: CASE EVENT DATE: 20150830
